FAERS Safety Report 8620537-9 (Version None)
Quarter: 2012Q3

REPORT INFORMATION
  Report Type: 
  Country: None (occurrence: None)
  Receive Date: 20120824
  Receipt Date: 20120820
  Transmission Date: 20120928
  Serious: Yes (Other)
  Sender: FDA-Public Use
  Company Number: IR-ROXANE LABORATORIES, INC.-2012-RO-01725RO

PATIENT
  Age: 30 Month
  Sex: Male

DRUGS (1)
  1. METHADONE HYDROCHLORIDE [Suspect]

REACTIONS (6)
  - TOXICITY TO VARIOUS AGENTS [None]
  - TORTICOLLIS [None]
  - COMA [None]
  - HYDROCEPHALUS [None]
  - ENCEPHALOPATHY [None]
  - CONVULSION [None]
